FAERS Safety Report 24113785 (Version 1)
Quarter: 2024Q3

REPORT INFORMATION
  Report Type: Spontaneous
  Country: US (occurrence: US)
  Receive Date: 20240720
  Receipt Date: 20240720
  Transmission Date: 20241017
  Serious: No
  Sender: ABBVIE
  Company Number: US-ABBVIE-5844602

PATIENT
  Sex: Male

DRUGS (1)
  1. LUPRON [Suspect]
     Active Substance: LEUPROLIDE ACETATE
     Indication: Prostate cancer
     Route: 030
     Dates: start: 202301

REACTIONS (4)
  - Sleep apnoea syndrome [Unknown]
  - Unevaluable event [Recovered/Resolved]
  - Hot flush [Recovered/Resolved]
  - Blood testosterone abnormal [Unknown]

NARRATIVE: CASE EVENT DATE: 20230101
